FAERS Safety Report 5681089-9 (Version None)
Quarter: 2008Q1

REPORT INFORMATION
  Report Type: 
  Country: None (occurrence: None)
  Receive Date: 20080325
  Receipt Date: 20080310
  Transmission Date: 20080703
  Serious: Yes (Other)
  Sender: FDA-Public Use
  Company Number: 8030818

PATIENT
  Sex: Male

DRUGS (3)
  1. KEPPRA [Suspect]
     Dosage: 3000 MG 1/D
  2. UNSPECIFIED BETA-BLOCKING AGENT [Concomitant]
  3. PROTECTIVE GASTRIC DRUG [Concomitant]

REACTIONS (1)
  - ULCER [None]
